FAERS Safety Report 5993300-5 (Version None)
Quarter: 2008Q4

REPORT INFORMATION
  Report Type: 
  Country: None (occurrence: None)
  Receive Date: 20081210
  Receipt Date: 20081210
  Transmission Date: 20090506
  Serious: Yes (Hospitalization)
  Sender: FDA-Public Use
  Company Number: None

PATIENT
  Sex: Male
  Weight: 96.4 kg

DRUGS (3)
  1. CLOFARABINE 84MG [Suspect]
     Indication: BONE MARROW CONDITIONING REGIMEN
     Dates: start: 20080110, end: 20080114
  2. CAMPATH [Suspect]
     Dates: start: 20080115, end: 20080115
  3. MELPHALAN 294MG [Suspect]

REACTIONS (2)
  - PNEUMONIA [None]
  - RESPIRATORY DISTRESS [None]
